FAERS Safety Report 19472240 (Version 2)
Quarter: 2021Q3

REPORT INFORMATION
  Report Type: Spontaneous
  Country: JP (occurrence: JP)
  Receive Date: 20210629
  Receipt Date: 20210702
  Transmission Date: 20211014
  Serious: Yes (Other)
  Sender: FDA-Public Use
  Company Number: JP-ASTELLAS-2021JP012593

PATIENT
  Sex: Female

DRUGS (1)
  1. GRACEPTOR [Suspect]
     Active Substance: TACROLIMUS
     Indication: IMMUNOSUPPRESSANT DRUG THERAPY
     Dosage: 1.0 MG/DAY, UNKNOWN FREQ.
     Route: 064

REACTIONS (3)
  - Apgar score low [Unknown]
  - Patent ductus arteriosus [Unknown]
  - Low birth weight baby [Unknown]
